FAERS Safety Report 4976461-6 (Version None)
Quarter: 2006Q2

REPORT INFORMATION
  Report Type: 
  Country: None (occurrence: None)
  Receive Date: 20060419
  Receipt Date: 20060410
  Transmission Date: 20061013
  Serious: Yes (Hospitalization)
  Sender: FDA-Public Use
  Company Number: JP-ROCHE-443802

PATIENT
  Age: 15 Month
  Sex: Male
  Weight: 10 kg

DRUGS (6)
  1. CEFTRIAXONE [Suspect]
     Indication: MENINGITIS
     Route: 042
  2. CEFTRIAXONE [Suspect]
     Dosage: FROM DAY 10  THE DOSE WAS DECREASED TO 1.2G/DAY
     Route: 042
  3. MEROPENEM [Concomitant]
  4. DEXAMETHASONE TAB [Concomitant]
  5. NAFAMOSTAT MESILATE [Concomitant]
  6. AMIKACIN SULFATE [Concomitant]

REACTIONS (4)
  - CALCULUS URINARY [None]
  - DISSEMINATED INTRAVASCULAR COAGULATION [None]
  - NEPHROLITHIASIS [None]
  - ORAL CANDIDIASIS [None]
